FAERS Safety Report 14123182 (Version 2)
Quarter: 2017Q4

REPORT INFORMATION
  Report Type: Spontaneous
  Country: DE (occurrence: DE)
  Receive Date: 20171025
  Receipt Date: 20171031
  Transmission Date: 20180321
  Serious: Yes (Life-Threatening, Hospitalization, Other)
  Sender: FDA-Public Use
  Company Number: DE-AUROBINDO-AUR-APL-2017-42184

PATIENT
  Age: 75 Year
  Sex: Male
  Weight: 80 kg

DRUGS (1)
  1. GABAPENTIN. [Suspect]
     Active Substance: GABAPENTIN
     Indication: ORTHOSTATIC TREMOR
     Dosage: 2400 MG, ONCE A DAY
     Route: 048

REACTIONS (2)
  - Pleural effusion [Unknown]
  - Organising pneumonia [Unknown]

NARRATIVE: CASE EVENT DATE: 20170110
